FAERS Safety Report 9170457 (Version 1)
Quarter: 2013Q1

REPORT INFORMATION
  Report Type: Report from Study
  Country: US (occurrence: US)
  Receive Date: 20130319
  Receipt Date: 20130319
  Transmission Date: 20140127
  Serious: Yes (Death, Hospitalization, Other)
  Sender: FDA-Public Use
  Company Number: US-BAYER-2013-026806

PATIENT
  Age: 64 Year
  Sex: Female

DRUGS (1)
  1. STIVARGA [Suspect]
     Indication: RECTAL CANCER
     Dosage: DAILY DOSE 120 MG
     Dates: start: 20121214, end: 20130118

REACTIONS (15)
  - Death [Fatal]
  - Terminal state [Not Recovered/Not Resolved]
  - Hepatic failure [Not Recovered/Not Resolved]
  - Skin lesion [Not Recovered/Not Resolved]
  - Liver disorder [None]
  - Confusional state [Not Recovered/Not Resolved]
  - Blood creatinine increased [None]
  - Renal injury [Not Recovered/Not Resolved]
  - Metastases to lung [Not Recovered/Not Resolved]
  - Carcinoembryonic antigen increased [Not Recovered/Not Resolved]
  - Inappropriate schedule of drug administration [None]
  - Medication error [None]
  - Drug ineffective [None]
  - Asthenia [Not Recovered/Not Resolved]
  - Fatigue [Not Recovered/Not Resolved]
